FAERS Safety Report 11912280 (Version 1)
Quarter: 2016Q1

REPORT INFORMATION
  Report Type: Spontaneous
  Country: US (occurrence: US)
  Receive Date: 20160113
  Receipt Date: 20160113
  Transmission Date: 20160526
  Serious: No
  Sender: FDA-Public Use
  Company Number: US-ALKEM-000931

PATIENT
  Sex: Male
  Weight: 86 kg

DRUGS (1)
  1. GABAPENTIN. [Suspect]
     Active Substance: GABAPENTIN
     Indication: DIABETIC NEUROPATHY
     Dosage: 900 MG AT MORNING, AT AFTERNOON AND AT NIGHT

REACTIONS (4)
  - Burning sensation [Unknown]
  - No therapeutic response [Unknown]
  - Off label use [Unknown]
  - Sleep disorder [Unknown]
